FAERS Safety Report 4871981-7 (Version None)
Quarter: 2005Q4

REPORT INFORMATION
  Report Type: 
  Country: None (occurrence: None)
  Receive Date: 20051230
  Receipt Date: 20051220
  Transmission Date: 20060501
  Serious: Yes (Hospitalization, Other)
  Sender: FDA-Public Use
  Company Number: US-2005-024232

PATIENT
  Age: 48 Year
  Sex: Female
  Weight: 90.7 kg

DRUGS (5)
  1. BETASERON [Suspect]
     Indication: MULTIPLE SCLEROSIS
     Dosage: SUBCUTANEOUS
     Route: 058
     Dates: start: 20030601, end: 20050501
  2. NEURONTIN [Concomitant]
  3. ZANAFLEX [Concomitant]
  4. DARVOCET-N (DEXTROPROPOXYPHENE NAPSILATE) [Concomitant]
  5. LIPITOR /NET/ (ATORVASTATIN CALCIUM) [Concomitant]

REACTIONS (8)
  - BILE DUCT OBSTRUCTION [None]
  - BILE DUCT STENOSIS [None]
  - HEPATIC ENZYME INCREASED [None]
  - INTESTINAL POLYP [None]
  - MENISCUS LESION [None]
  - PANCREATIC DUCT OBSTRUCTION [None]
  - PANCREATITIS CHRONIC [None]
  - PATELLA FRACTURE [None]
